FAERS Safety Report 6245240-4 (Version None)
Quarter: 2009Q2

REPORT INFORMATION
  Report Type: 
  Country: None (occurrence: None)
  Receive Date: 20090625
  Receipt Date: 20090622
  Transmission Date: 20091009
  Serious: Yes (Death)
  Sender: FDA-Public Use
  Company Number: NZ-BAYER-200923843GPV

PATIENT
  Age: 64 Year
  Sex: Female
  Weight: 80 kg

DRUGS (6)
  1. NEXAVAR [Suspect]
     Indication: THYROID CANCER
     Dosage: TOTAL DAILY DOSE: 800 MG
     Route: 048
     Dates: start: 20090418, end: 20090611
  2. OXYCODONE HCL [Concomitant]
     Indication: PAIN
     Route: 058
     Dates: start: 20090612
  3. HALOPERIDOL [Concomitant]
     Indication: NAUSEA
     Dates: start: 20090612
  4. MYOSCINE [Concomitant]
     Indication: PERCUSSION TEST ABNORMAL
     Dosage: TID PRN
     Route: 058
  5. CLONOZEPAM [Concomitant]
     Indication: SEDATION
     Dosage: QID PRN
     Route: 058
  6. CYCLIZINE [Concomitant]
     Indication: NAUSEA

REACTIONS (3)
  - DYSPNOEA [None]
  - HYDROPNEUMOTHORAX [None]
  - PULMONARY EMBOLISM [None]
